FAERS Safety Report 5589326-6 (Version None)
Quarter: 2008Q1

REPORT INFORMATION
  Report Type: 
  Country: None (occurrence: None)
  Receive Date: 20080114
  Receipt Date: 20080107
  Transmission Date: 20080703
  Serious: Yes (Other)
  Sender: FDA-Public Use
  Company Number: US-AVENTIS-200718251US

PATIENT
  Sex: Male
  Weight: 42.6 kg

DRUGS (5)
  1. LANTUS [Suspect]
     Route: 051
     Dates: start: 20071030, end: 20070101
  2. LANTUS [Suspect]
     Dosage: DOSE: 10-11
     Route: 051
     Dates: start: 20070101
  3. LANTUS [Suspect]
     Dosage: DOSE: 12-14 UNITS
     Route: 051
  4. CARDIOVASCULAR SYSTEM DRUGS [Concomitant]
     Dosage: DOSE: UNK
  5. NOVOLOG [Concomitant]
     Dosage: DOSE: UNK; FREQUENCY: BEFORE MEALS
     Dates: start: 20071010

REACTIONS (5)
  - ANGINA PECTORIS [None]
  - BLOOD GLUCOSE DECREASED [None]
  - BLOOD GLUCOSE INCREASED [None]
  - DRUG INEFFECTIVE [None]
  - GLYCOSYLATED HAEMOGLOBIN INCREASED [None]
